FAERS Safety Report 4284956-6 (Version None)
Quarter: 2004Q1

REPORT INFORMATION
  Report Type: 
  Country: None (occurrence: None)
  Receive Date: 20040202
  Receipt Date: 20040121
  Transmission Date: 20041129
  Serious: Yes (Other)
  Sender: FDA-Public Use
  Company Number: US-JNJFOC-20040104483

PATIENT
  Sex: Male
  Weight: 76.6579 kg

DRUGS (12)
  1. REMICADE [Suspect]
     Indication: RHEUMATOID ARTHRITIS
     Dosage: 3 VIALS
     Dates: start: 20040109
  2. METHOTREXATE [Concomitant]
  3. PLAQUENIL [Concomitant]
  4. PREDNISONE [Concomitant]
  5. GLUCOTROL [Concomitant]
  6. GLUCOPHAGE [Concomitant]
  7. CELEBREX [Concomitant]
  8. NORVASC [Concomitant]
  9. ACETYLSALICYLIC ACID SRT [Concomitant]
  10. ACIPHEX [Concomitant]
  11. PROTONIX (PANTOPAZOLE) [Concomitant]
  12. IMDUR [Concomitant]

REACTIONS (1)
  - ARTERIAL OCCLUSIVE DISEASE [None]
